FAERS Safety Report 5514393-5 (Version None)
Quarter: 2007Q4

REPORT INFORMATION
  Report Type: 
  Country: None (occurrence: None)
  Receive Date: 20071113
  Receipt Date: 20070606
  Transmission Date: 20080405
  Serious: No
  Sender: FDA-Public Use
  Company Number: A0650269A

PATIENT
  Age: 65 Year
  Sex: Female

DRUGS (14)
  1. COREG [Suspect]
     Route: 048
  2. TYKERB [Suspect]
     Indication: BREAST CANCER
     Dosage: 1250MG PER DAY
     Route: 048
     Dates: start: 20070423
  3. QUINAPRIL HCL [Suspect]
  4. XELODA [Concomitant]
  5. ACIPHEX [Concomitant]
  6. LISINOPRIL [Concomitant]
  7. COREG [Concomitant]
  8. POTASSIUM CHLORIDE [Concomitant]
  9. FUROSEMIDE [Concomitant]
  10. CALCIUM [Concomitant]
  11. LORAZEPAM [Concomitant]
  12. TEMAZEPAM [Concomitant]
  13. FOSAMAX [Concomitant]
  14. ZYRTEC [Concomitant]

REACTIONS (3)
  - BLOOD PRESSURE DECREASED [None]
  - DIARRHOEA [None]
  - DIZZINESS [None]
